FAERS Safety Report 7098721-8 (Version None)
Quarter: 2010Q4

REPORT INFORMATION
  Report Type: 
  Country: None (occurrence: None)
  Receive Date: 20101112
  Receipt Date: 20080330
  Transmission Date: 20110411
  Serious: Yes (Other)
  Sender: FDA-Public Use
  Company Number: US-KINGPHARMUSA00001-K200800384

PATIENT
  Age: 52 Year
  Sex: Female

DRUGS (5)
  1. SKELAXIN [Suspect]
     Indication: NERVE COMPRESSION
     Dosage: 800 MG, TID
     Route: 048
     Dates: start: 20080320, end: 20080320
  2. SKELAXIN [Suspect]
     Dosage: 800 MG, SINGLE
     Dates: start: 20080327, end: 20080327
  3. SYNTHROID [Concomitant]
     Indication: AUTOIMMUNE THYROIDITIS
     Dosage: 100 MCG, QD
     Route: 048
     Dates: start: 19940101
  4. ESTROGENS [Concomitant]
     Indication: HYSTERECTOMY
     Route: 062
     Dates: start: 19970101
  5. NEXIUM [Concomitant]
     Indication: GASTROOESOPHAGEAL REFLUX DISEASE
     Route: 048

REACTIONS (6)
  - ANAPHYLACTIC REACTION [None]
  - CHEST DISCOMFORT [None]
  - OEDEMA PERIPHERAL [None]
  - PHARYNGEAL OEDEMA [None]
  - PRURITUS GENERALISED [None]
  - URTICARIA [None]
